FAERS Safety Report 9291118 (Version 1)
Quarter: 2013Q2

REPORT INFORMATION
  Report Type: Spontaneous
  Country: US (occurrence: US)
  Receive Date: 20130515
  Receipt Date: 20130515
  Transmission Date: 20140414
  Serious: Yes (Other)
  Sender: FDA-Public Use
  Company Number: US-NICOBRDEVP-2013-08103

PATIENT
  Sex: Female

DRUGS (13)
  1. FOLPLEX [Concomitant]
     Indication: PRODUCT USED FOR UNKNOWN INDICATION
     Dosage: UNK
     Route: 065
  2. PRENATAL VITAMINS                  /01549301/ [Concomitant]
     Indication: PRODUCT USED FOR UNKNOWN INDICATION
     Dosage: UNK
     Route: 065
  3. FISH OIL [Concomitant]
     Indication: PRODUCT USED FOR UNKNOWN INDICATION
     Dosage: UNK
     Route: 065
  4. MICROGESTIN [Suspect]
     Indication: CONTRACEPTION
     Dosage: UNK
     Route: 048
  5. LAMOTRIGINE (WATSON LABORATORIES) [Suspect]
     Indication: BIPOLAR II DISORDER
     Dosage: 300 MG, UNK
     Route: 048
  6. VENLAFAXINE HYDROCHLORIDE (UNKNOWN) [Suspect]
     Indication: DEPRESSIVE SYMPTOM
     Dosage: UNK
     Route: 065
  7. LAMICTAL [Suspect]
     Indication: BIPOLAR II DISORDER
     Dosage: 300 MG, UNK
     Route: 048
     Dates: start: 2001
  8. ZIPRASIDONE [Suspect]
     Indication: PRODUCT USED FOR UNKNOWN INDICATION
     Dosage: UNK
     Route: 065
  9. WELLBUTRIN [Suspect]
     Indication: DEPRESSIVE SYMPTOM
     Dosage: UNK
     Route: 048
  10. LEXAPRO [Suspect]
     Indication: DEPRESSIVE SYMPTOM
     Dosage: UNK
     Route: 065
  11. ATORVASTATIN CALCIUM [Concomitant]
     Indication: PRODUCT USED FOR UNKNOWN INDICATION
     Dosage: UNK
     Route: 065
  12. OXCARBAZEPINE [Concomitant]
     Indication: PRODUCT USED FOR UNKNOWN INDICATION
     Dosage: UNK
     Route: 065
  13. NORTRIPTYLINE [Concomitant]
     Indication: PRODUCT USED FOR UNKNOWN INDICATION
     Dosage: UNK
     Route: 065

REACTIONS (16)
  - Abortion spontaneous [Unknown]
  - Overdose [Unknown]
  - Depression [Unknown]
  - Bedridden [Unknown]
  - Hypersomnia [Unknown]
  - Decreased activity [Unknown]
  - Disturbance in attention [Unknown]
  - Maternal exposure during pregnancy [Unknown]
  - Drug level decreased [Unknown]
  - Depressed mood [Unknown]
  - Mood altered [Unknown]
  - Drug interaction [Unknown]
  - Stress [Unknown]
  - Impaired work ability [None]
  - Activities of daily living impaired [None]
  - Disability [Unknown]
